FAERS Safety Report 17160417 (Version 3)
Quarter: 2021Q3

REPORT INFORMATION
  Report Type: Spontaneous
  Country: GR (occurrence: GR)
  Receive Date: 20191216
  Receipt Date: 20210804
  Transmission Date: 20211014
  Serious: Yes (Other)
  Sender: FDA-Public Use
  Company Number: GR-PFIZER INC-2019532445

PATIENT
  Sex: Female

DRUGS (3)
  1. METHYLPREDNISOLONE SODIUM SUCCINATE. [Suspect]
     Active Substance: METHYLPREDNISOLONE SODIUM SUCCINATE
     Indication: CARDIAC HAEMANGIOMA BENIGN
     Dosage: 1 MG/KG, QD (1/DAY) IN TWO DOSES
     Route: 042
  2. PROPRANOLOL [Suspect]
     Active Substance: PROPRANOLOL HYDROCHLORIDE
     Indication: CARDIAC HAEMANGIOMA BENIGN
     Dosage: 3 MG/KG 1X/DAY
     Route: 048
  3. PROPRANOLOL [Suspect]
     Active Substance: PROPRANOLOL HYDROCHLORIDE
     Dosage: UNK
     Route: 048

REACTIONS (3)
  - Haemodynamic instability [Unknown]
  - Sepsis [Unknown]
  - Anaemia [Unknown]
